FAERS Safety Report 6146629-4 (Version None)
Quarter: 2009Q2

REPORT INFORMATION
  Report Type: 
  Country: None (occurrence: None)
  Receive Date: 20090407
  Receipt Date: 20090330
  Transmission Date: 20091009
  Serious: Yes (Life-Threatening, Hospitalization, Other)
  Sender: FDA-Public Use
  Company Number: US-VALEANT-2009VX000567

PATIENT
  Sex: Male

DRUGS (2)
  1. LIBRIUM [Suspect]
     Indication: DRUG USE FOR UNKNOWN INDICATION
     Route: 065
  2. ATIVAN [Suspect]
     Indication: DRUG USE FOR UNKNOWN INDICATION
     Route: 065

REACTIONS (12)
  - ABNORMAL BEHAVIOUR [None]
  - ANXIETY [None]
  - CARDIOVASCULAR INSUFFICIENCY [None]
  - HALLUCINATION [None]
  - HALLUCINATION, VISUAL [None]
  - IMPRISONMENT [None]
  - LOSS OF CONSCIOUSNESS [None]
  - MENTAL DISORDER [None]
  - PARANOIA [None]
  - PSYCHOTIC DISORDER [None]
  - TACHYCARDIA [None]
  - THEFT [None]
